FAERS Safety Report 7373866-3 (Version None)
Quarter: 2011Q1

REPORT INFORMATION
  Report Type: 
  Country: None (occurrence: None)
  Receive Date: 20110325
  Receipt Date: 20110321
  Transmission Date: 20110831
  Serious: No
  Sender: FDA-Public Use
  Company Number: US-PFIZER INC-2011063150

PATIENT

DRUGS (1)
  1. NICOTROL [Suspect]
     Route: 055

REACTIONS (1)
  - GLOSSODYNIA [None]
